FAERS Safety Report 25923264 (Version 3)
Quarter: 2025Q4

REPORT INFORMATION
  Report Type: Report from Study
  Country: US (occurrence: US)
  Receive Date: 20251015
  Receipt Date: 20251229
  Transmission Date: 20260118
  Serious: Yes (Hospitalization)
  Sender: ROCHE
  Company Number: US-ROCHE-2995793

PATIENT
  Age: 51 Year
  Sex: Female
  Weight: 68 kg

DRUGS (17)
  1. RITUXAN [Suspect]
     Active Substance: RITUXIMAB
     Indication: Multiple sclerosis
     Dosage: DATE OF SERVICE : 29/DEC/2021, 05/JUL/2023
     Route: 041
     Dates: start: 20181109
  2. RITUXAN [Suspect]
     Active Substance: RITUXIMAB
     Route: 041
     Dates: start: 2021
  3. RITUXAN [Suspect]
     Active Substance: RITUXIMAB
     Route: 041
  4. RITUXAN [Suspect]
     Active Substance: RITUXIMAB
     Route: 041
  5. RITUXAN [Suspect]
     Active Substance: RITUXIMAB
     Route: 042
  6. OCREVUS [Suspect]
     Active Substance: OCRELIZUMAB
     Indication: Multiple sclerosis
  7. CELEXA [Concomitant]
     Active Substance: CITALOPRAM HYDROBROMIDE
  8. NEURONTIN [Concomitant]
     Active Substance: GABAPENTIN
  9. ZANAFLEX [Concomitant]
     Active Substance: TIZANIDINE HYDROCHLORIDE
  10. DECADRON [Concomitant]
     Active Substance: DEXAMETHASONE
  11. ACETAMINOPHEN [Concomitant]
     Active Substance: ACETAMINOPHEN
     Route: 048
  12. BENADRYL [Concomitant]
     Active Substance: DIPHENHYDRAMINE HYDROCHLORIDE
     Indication: Premedication
     Route: 048
  13. SOLU-MEDROL [Concomitant]
     Active Substance: METHYLPREDNISOLONE SODIUM SUCCINATE
     Indication: Premedication
  14. TYLENOL [Concomitant]
     Active Substance: ACETAMINOPHEN
     Indication: Premedication
  15. PEPCID [Concomitant]
     Active Substance: FAMOTIDINE
     Indication: Premedication
  16. ZOFRAN [Concomitant]
     Active Substance: ONDANSETRON HYDROCHLORIDE
     Indication: Premedication
     Dosage: DISINTEGRATING TABLET
  17. DIPHENHYDRAMINE [Concomitant]
     Active Substance: DIPHENHYDRAMINE
     Route: 048

REACTIONS (2)
  - Off label use [Unknown]
  - Sepsis [Unknown]
